FAERS Safety Report 4997181-8 (Version None)
Quarter: 2006Q2

REPORT INFORMATION
  Report Type: 
  Country: None (occurrence: None)
  Receive Date: 20060505
  Receipt Date: 20060505
  Transmission Date: 20061013
  Serious: Yes (Other)
  Sender: FDA-Public Use
  Company Number: None

PATIENT
  Age: 61 Year
  Sex: Female
  Weight: 103.4201 kg

DRUGS (1)
  1. ACTOS [Suspect]
     Indication: DIABETES MELLITUS NON-INSULIN-DEPENDENT
     Dosage: 15 MG     ONCE DAILY    PO
     Route: 048
     Dates: start: 20060428, end: 20060430

REACTIONS (3)
  - BACK PAIN [None]
  - HEADACHE [None]
  - SWELLING FACE [None]
